FAERS Safety Report 4526445-7 (Version None)
Quarter: 2004Q4

REPORT INFORMATION
  Report Type: 
  Country: None (occurrence: None)
  Receive Date: 20041214
  Receipt Date: 20040305
  Transmission Date: 20050328
  Serious: Yes (Hospitalization, Other)
  Sender: FDA-Public Use
  Company Number: US-MERCK-0403USA00626

PATIENT
  Age: 62 Year
  Sex: Female
  Weight: 68 kg

DRUGS (18)
  1. FOSAMAX [Suspect]
     Indication: OSTEOPOROSIS
     Route: 048
     Dates: end: 20040201
  2. FOSAMAX [Suspect]
     Route: 048
     Dates: start: 19980101
  3. FOSAMAX [Suspect]
     Route: 048
  4. FOSAMAX [Suspect]
     Indication: OSTEOPENIA
     Route: 048
     Dates: end: 20040201
  5. FOSAMAX [Suspect]
     Route: 048
     Dates: start: 19980101
  6. FOSAMAX [Suspect]
     Route: 048
  7. ESTROGENS (UNSPECIFIED) [Concomitant]
     Route: 065
     Dates: end: 20021001
  8. CALCIUM (UNSPECIFIED) [Concomitant]
     Route: 065
     Dates: start: 20030101
  9. VITAMIN D (UNSPECIFIED) [Concomitant]
     Route: 065
  10. SYNTHROID [Concomitant]
     Route: 065
  11. ASPIRIN [Concomitant]
     Route: 065
  12. DYAZIDE [Concomitant]
     Indication: HYPERTENSION
     Route: 065
  13. DYAZIDE [Concomitant]
     Indication: OEDEMA
     Route: 065
  14. AMBIEN [Concomitant]
     Route: 065
  15. PRAVACHOL [Concomitant]
     Indication: HYPERCHOLESTEROLAEMIA
     Route: 065
  16. LEXAPRO [Concomitant]
     Route: 065
  17. BEXTRA [Concomitant]
     Indication: OSTEOARTHRITIS
     Route: 065
  18. ACETAMINOPHEN AND HYDROCODONE BITARTRATE [Concomitant]
     Route: 065

REACTIONS (4)
  - BONE DISORDER [None]
  - BREAST CANCER [None]
  - FEMUR FRACTURE [None]
  - FRACTURE DELAYED UNION [None]
